FAERS Safety Report 23409099 (Version 1)
Quarter: 2024Q1

REPORT INFORMATION
  Report Type: Spontaneous
  Country: US (occurrence: None)
  Receive Date: 20240115
  Receipt Date: 20240115
  Transmission Date: 20240410
  Serious: No
  Sender: FDA-Public Use
  Company Number: None

PATIENT
  Age: 52 Year
  Sex: Female
  Weight: 48.6 kg

DRUGS (6)
  1. MONISTAT 3 [Suspect]
     Active Substance: MICONAZOLE NITRATE
     Indication: Vulvovaginal mycotic infection
     Dosage: FREQUENCY : AT BEDTIME;?
     Route: 067
     Dates: start: 20240111, end: 20240113
  2. bioidentical hormone replacement therapy [Concomitant]
  3. VITAMIN B12 [Concomitant]
     Active Substance: CYANOCOBALAMIN
  4. B1 [Concomitant]
  5. CHOLINE [Concomitant]
     Active Substance: CHOLINE
  6. PROBIOTICS NOS [Concomitant]
     Active Substance: PROBIOTICS NOS

REACTIONS (1)
  - Palpitations [None]

NARRATIVE: CASE EVENT DATE: 20240113
